FAERS Safety Report 19186855 (Version 2)
Quarter: 2021Q2

REPORT INFORMATION
  Report Type: Spontaneous
  Country: US (occurrence: US)
  Receive Date: 20210427
  Receipt Date: 20210503
  Transmission Date: 20210717
  Serious: Yes (Other)
  Sender: FDA-Public Use
  Company Number: US-FOUNDATIONCB-2021-US-008623

PATIENT
  Age: 11 Year
  Sex: Male
  Weight: 35.83 kg

DRUGS (4)
  1. MOTRIN [Concomitant]
     Active Substance: IBUPROFEN
  2. CHILDRENS DIMETAPP COLD AND COUGH [Suspect]
     Active Substance: BROMPHENIRAMINE MALEATE\DEXTROMETHORPHAN HYDROBROMIDE\PHENYLEPHRINE HYDROCHLORIDE
     Indication: COUGH
     Dosage: 10ML EVERY 4 HOURS AS NEEDED AROUND 2 TIMES DAILY FOR COUGH
     Route: 048
     Dates: start: 20210316, end: 20210323
  3. TYLENOL [Concomitant]
     Active Substance: ACETAMINOPHEN
  4. GUMMY VITAMIN [Concomitant]

REACTIONS (10)
  - Feeling abnormal [Recovered/Resolved]
  - Heart rate increased [Recovered/Resolved]
  - Seizure [Unknown]
  - Tremor [Recovered/Resolved]
  - Blood iron decreased [Unknown]
  - Loss of consciousness [Unknown]
  - Dizziness [Recovered/Resolved]
  - Presyncope [Recovered/Resolved]
  - Pharyngitis streptococcal [Recovered/Resolved]
  - Vitamin D decreased [Unknown]

NARRATIVE: CASE EVENT DATE: 20210322
